FAERS Safety Report 10915718 (Version 1)
Quarter: 2015Q1

REPORT INFORMATION
  Report Type: Spontaneous
  Country: US (occurrence: None)
  Receive Date: 20150311
  Receipt Date: 20150311
  Transmission Date: 20150721
  Serious: No
  Sender: FDA-Public Use
  Company Number: None

PATIENT
  Age: 84 Year
  Sex: Female
  Weight: 55.38 kg

DRUGS (8)
  1. AMLOPIDINE BESYLATE [Concomitant]
  2. AZO CRANBERRY [Concomitant]
  3. D3 1000 [Concomitant]
  4. DULOXETINE DELAYED-RELEASE [Suspect]
     Active Substance: DULOXETINE HYDROCHLORIDE
     Indication: INSOMNIA
     Dosage: 33.7 MG DULOXETINE HYDROCHLORIDE = 31 MG DULOXETINE, 1 CAPSULE A DAY, ONCE DAILY, BY MOUTH
     Route: 048
     Dates: start: 20150225, end: 20150228
  5. TARAZOSIN [Concomitant]
  6. METHIMAZOLE. [Concomitant]
     Active Substance: METHIMAZOLE
  7. DULOXETINE DELAYED-RELEASE [Suspect]
     Active Substance: DULOXETINE HYDROCHLORIDE
     Indication: DEPRESSION
     Dosage: 33.7 MG DULOXETINE HYDROCHLORIDE = 31 MG DULOXETINE, 1 CAPSULE A DAY, ONCE DAILY, BY MOUTH
     Route: 048
     Dates: start: 20150225, end: 20150228
  8. LOPRESSOR [Concomitant]
     Active Substance: METOPROLOL TARTRATE

REACTIONS (4)
  - Gastrointestinal pain [None]
  - Flatulence [None]
  - Diarrhoea [None]
  - Gastroenteritis viral [None]

NARRATIVE: CASE EVENT DATE: 20150225
